FAERS Safety Report 26196953 (Version 1)
Quarter: 2025Q4

REPORT INFORMATION
  Report Type: Spontaneous
  Country: EU (occurrence: EU)
  Receive Date: 20251224
  Receipt Date: 20251224
  Transmission Date: 20260117
  Serious: Yes (Other)
  Sender: BANNER
  Company Number: None

PATIENT
  Age: 36 Year
  Sex: Male
  Weight: 73 kg

DRUGS (1)
  1. IBUPROFEN [Suspect]
     Active Substance: IBUPROFEN
     Indication: Tooth abscess
     Dosage: 400 MG/3 HOURS
     Route: 048
     Dates: start: 20251025, end: 20251029

REACTIONS (4)
  - Inappropriate schedule of product administration [Recovered/Resolved]
  - Vomiting [Recovered/Resolved]
  - Abdominal pain [Recovered/Resolved]
  - Hepatic cytolysis [Recovered/Resolved]

NARRATIVE: CASE EVENT DATE: 20251025
